FAERS Safety Report 18005087 (Version 5)
Quarter: 2021Q3

REPORT INFORMATION
  Report Type: Spontaneous
  Country: US (occurrence: US)
  Receive Date: 20200710
  Receipt Date: 20210813
  Transmission Date: 20211014
  Serious: No
  Sender: FDA-Public Use
  Company Number: US-PFIZER INC-2020261573

PATIENT
  Age: 61 Year
  Sex: Male

DRUGS (2)
  1. SOMAVERT [Suspect]
     Active Substance: PEGVISOMANT
     Indication: GIGANTISM
     Dosage: 10 MG, 1X/DAY (SOMAVERT 10MG SC QD (ONCE A DAY)
     Route: 058
     Dates: start: 20180828
  2. SOMAVERT [Suspect]
     Active Substance: PEGVISOMANT
     Indication: ACROMEGALY
     Dosage: 10 MG, 1X/DAY (SOMAVERT 10MG SC QD (ONCE A DAY)
     Route: 058
     Dates: start: 20180825

REACTIONS (1)
  - Drug ineffective [Unknown]
